FAERS Safety Report 9753159 (Version 1)
Quarter: 2013Q4

REPORT INFORMATION
  Report Type: Spontaneous
  Country: US (occurrence: US)
  Receive Date: 20131213
  Receipt Date: 20131213
  Transmission Date: 20140711
  Serious: No
  Sender: FDA-Public Use
  Company Number: US-GILEAD-2010-0026779

PATIENT
  Sex: Female
  Weight: 94.8 kg

DRUGS (21)
  1. LETAIRIS [Suspect]
     Indication: PULMONARY ARTERIAL HYPERTENSION
     Route: 048
     Dates: start: 20091223
  2. SPIRONOLACTONE [Concomitant]
  3. HYDROCHLORTHIAZIDE [Concomitant]
  4. DIGOXIN [Concomitant]
  5. REMODULIN [Concomitant]
  6. CELLCEPT [Concomitant]
  7. PREDNISONE [Concomitant]
  8. BONIVA [Concomitant]
  9. GAMUNEX [Concomitant]
  10. HEPARIN [Concomitant]
  11. PAXIL [Concomitant]
  12. AMOXICILLIN [Concomitant]
  13. EPI-PEN [Concomitant]
  14. DIPHENHYDRAMINE [Concomitant]
  15. ZYRTEC [Concomitant]
  16. SODIUM CHLORIDE [Concomitant]
  17. DEXTROSE 5% [Concomitant]
  18. MULTIVITAMIN [Concomitant]
  19. TYLENOL #3 [Concomitant]
  20. TYLENOL [Concomitant]
  21. OXYGEN [Concomitant]

REACTIONS (2)
  - Headache [Unknown]
  - Flushing [Unknown]
